FAERS Safety Report 20127837 (Version 2)
Quarter: 2021Q4

REPORT INFORMATION
  Report Type: Spontaneous
  Country: US (occurrence: US)
  Receive Date: 20211129
  Receipt Date: 20211210
  Transmission Date: 20220303
  Serious: No
  Sender: FDA-Public Use
  Company Number: US-009507513-2111USA001430

PATIENT
  Age: 69 Year
  Sex: Male

DRUGS (8)
  1. TEMODAR [Suspect]
     Active Substance: TEMOZOLOMIDE
     Indication: Neuroendocrine tumour of the rectum
     Dosage: 200 MILLIGRAM/SQ. METER, ON DAYS 10 THROUGH 14 OF A 28-DAY CYCLE
     Route: 048
     Dates: start: 201601, end: 201611
  2. TEMODAR [Suspect]
     Active Substance: TEMOZOLOMIDE
     Indication: Neuroendocrine carcinoma metastatic
  3. CAPECITABINE [Concomitant]
     Active Substance: CAPECITABINE
     Indication: Neuroendocrine tumour of the rectum
     Dosage: 750 MILLIGRAM/SQ. METER, TWICE DAILY ON DAYS 1 THROUGH 14 OF A 28-DAY CYCLE
     Dates: start: 201601, end: 201611
  4. CAPECITABINE [Concomitant]
     Active Substance: CAPECITABINE
     Indication: Neuroendocrine carcinoma metastatic
  5. LANREOTIDE [Concomitant]
     Active Substance: LANREOTIDE
     Indication: Neuroendocrine tumour of the rectum
     Dosage: UNK
     Dates: start: 201601
  6. LANREOTIDE [Concomitant]
     Active Substance: LANREOTIDE
     Indication: Neuroendocrine carcinoma metastatic
  7. TOPOTECAN [Concomitant]
     Active Substance: TOPOTECAN HYDROCHLORIDE
     Indication: Neuroendocrine tumour of the rectum
     Dosage: 1.5 MILLIGRAM/SQ. METER ON DAYS 1 THROUGH 5 EVERY 3 WEEKS, FIRST CYCLE
     Dates: start: 201510
  8. TOPOTECAN [Concomitant]
     Active Substance: TOPOTECAN HYDROCHLORIDE
     Indication: Neuroendocrine carcinoma metastatic
     Dosage: 1.5 MILLIGRAM/SQ. METER ON DAYS 1 THROUGH 5 EVERY 3 WEEKS, SECOND CYCLE
     Dates: start: 201512

REACTIONS (1)
  - Product use in unapproved indication [Unknown]

NARRATIVE: CASE EVENT DATE: 20160101
